FAERS Safety Report 7586964-6 (Version None)
Quarter: 2011Q3

REPORT INFORMATION
  Report Type: 
  Country: None (occurrence: None)
  Receive Date: 20110701
  Receipt Date: 20110620
  Transmission Date: 20111222
  Serious: Yes (Life-Threatening, Hospitalization)
  Sender: FDA-Public Use
  Company Number: US-BAYER-2011-049066

PATIENT
  Sex: Male

DRUGS (2)
  1. AVELOX [Suspect]
     Indication: PRODUCT USED FOR UNKNOWN INDICATION
     Dosage: 400 MG, ONCE
     Route: 048
  2. AVELOX [Suspect]
     Dosage: 400 MG, ONCE
     Route: 048

REACTIONS (3)
  - RESPIRATORY ARREST [None]
  - ANAPHYLACTIC SHOCK [None]
  - RASH [None]
